FAERS Safety Report 9229496 (Version 1)
Quarter: 2013Q2

REPORT INFORMATION
  Report Type: Spontaneous
  Country: FR (occurrence: FR)
  Receive Date: 20130412
  Receipt Date: 20130412
  Transmission Date: 20140414
  Serious: Yes (Hospitalization)
  Sender: FDA-Public Use
  Company Number: FR-B.I. PHARMACEUTICALS,INC./RIDGEFIELD-2013-FF-01087FF

PATIENT
  Age: 64 Year
  Sex: Female

DRUGS (9)
  1. PRADAXA [Suspect]
     Indication: ATRIAL FIBRILLATION
     Dosage: 300 MG
     Route: 048
     Dates: start: 201207, end: 20121214
  2. INNOHEP [Concomitant]
     Dosage: 0.65 ML
     Route: 058
     Dates: start: 20121215
  3. CRESTOR [Concomitant]
     Indication: DYSLIPIDAEMIA
     Dosage: 10 MG
     Route: 048
  4. INEXIUM [Concomitant]
     Dosage: 20 MG
     Route: 048
  5. DEPAKINE CHRONO [Concomitant]
     Indication: EPILEPSY
     Route: 048
     Dates: end: 20130110
  6. LEVOTHYROXINE SODIUM [Concomitant]
     Dosage: 25 MG
     Route: 048
  7. ATENOLOL [Concomitant]
     Dosage: 50 MG
     Route: 048
  8. AMLODIPINE [Concomitant]
     Dosage: 10 MG
     Route: 048
  9. CORDARONE [Concomitant]
     Indication: ATRIAL FIBRILLATION
     Dosage: 85.7143 MG
     Route: 048

REACTIONS (2)
  - Cardiac valve replacement complication [Not Recovered/Not Resolved]
  - Drug ineffective [Not Recovered/Not Resolved]
